FAERS Safety Report 8061568-X (Version None)
Quarter: 2012Q1

REPORT INFORMATION
  Report Type: 
  Country: None (occurrence: None)
  Receive Date: 20120122
  Receipt Date: 20120114
  Transmission Date: 20120608
  Serious: Yes (Other)
  Sender: FDA-Public Use
  Company Number: PHEH2011US009979

PATIENT
  Sex: Female

DRUGS (7)
  1. REMERON [Concomitant]
     Indication: DEPRESSION
     Dosage: UNK UKN, UNK
     Route: 048
  2. BACLOFEN [Concomitant]
     Indication: MUSCLE SPASTICITY
     Dosage: UNK UKN, UNK
     Route: 048
  3. KLONOPIN [Concomitant]
     Indication: ANXIETY
     Dosage: UNK UKN, UNK
     Route: 048
  4. GILENYA [Suspect]
     Indication: MULTIPLE SCLEROSIS
     Dosage: 0.5 MG, QD
     Route: 048
     Dates: start: 20110720
  5. LYRICA [Concomitant]
     Indication: PAIN
     Dosage: UNK UKN, UNK
     Route: 048
  6. ZOLOFT [Concomitant]
     Indication: DEPRESSION
     Dosage: UNK UKN, UNK
     Route: 048
  7. ABILIFY [Concomitant]
     Indication: ANXIETY
     Dosage: UNK UKN, UNK
     Route: 048

REACTIONS (5)
  - PAIN OF SKIN [None]
  - URINARY INCONTINENCE [None]
  - DRY SKIN [None]
  - RASH [None]
  - HEADACHE [None]
